FAERS Safety Report 13732460 (Version 1)
Quarter: 2017Q3

REPORT INFORMATION
  Report Type: Spontaneous
  Country: US (occurrence: US)
  Receive Date: 20170707
  Receipt Date: 20170707
  Transmission Date: 20171127
  Serious: No
  Sender: FDA-Public Use
  Company Number: US-SA-2017SA115955

PATIENT
  Sex: Female

DRUGS (1)
  1. DUPIXENT [Suspect]
     Active Substance: DUPILUMAB
     Indication: DERMATITIS ATOPIC
     Dosage: FREQUENCY: EVEERY TWO WEEKS
     Route: 065
     Dates: start: 20170613

REACTIONS (8)
  - Joint swelling [Unknown]
  - Condition aggravated [Unknown]
  - Oedema peripheral [Unknown]
  - Arthralgia [Unknown]
  - Arthritis [Unknown]
  - Ligament sprain [Unknown]
  - Gait disturbance [Unknown]
  - Feeling hot [Unknown]

NARRATIVE: CASE EVENT DATE: 201706
